FAERS Safety Report 7277904-8 (Version None)
Quarter: 2011Q1

REPORT INFORMATION
  Report Type: 
  Country: None (occurrence: None)
  Receive Date: 20110207
  Receipt Date: 20110128
  Transmission Date: 20110831
  Serious: Yes (Other)
  Sender: FDA-Public Use
  Company Number: US-JNJFOC-20100806875

PATIENT
  Sex: Female

DRUGS (10)
  1. LEVAQUIN [Suspect]
     Indication: INFECTION
     Route: 048
  2. PREDNISONE [Suspect]
     Indication: INFLAMMATION
     Route: 065
  3. DEXAMETHASONE [Suspect]
     Indication: INFLAMMATION
     Route: 065
  4. ALPRAZOLAM [Concomitant]
     Indication: DEPRESSION
     Route: 065
  5. AVELOX [Suspect]
     Indication: PRODUCT USED FOR UNKNOWN INDICATION
     Route: 065
  6. TEQUIN [Suspect]
     Indication: PRODUCT USED FOR UNKNOWN INDICATION
     Route: 065
  7. ADVAIR DISKUS 100/50 [Suspect]
     Indication: INFLAMMATION
     Route: 065
  8. LORAZEPAM [Concomitant]
     Indication: DEPRESSION
     Route: 065
  9. CIPROFLOXACIN [Suspect]
     Indication: INFECTION
     Route: 065
  10. METHYLPREDNISOLONE [Suspect]
     Indication: INFLAMMATION
     Route: 065

REACTIONS (4)
  - DEPRESSION [None]
  - BURSITIS [None]
  - TENDON RUPTURE [None]
  - JOINT INJURY [None]
